FAERS Safety Report 4769101-2 (Version None)
Quarter: 2005Q3

REPORT INFORMATION
  Report Type: 
  Country: None (occurrence: None)
  Receive Date: 20050913
  Receipt Date: 20050831
  Transmission Date: 20060218
  Serious: Yes (Death)
  Sender: FDA-Public Use
  Company Number: 2005122999

PATIENT
  Age: 63 Year
  Sex: Male

DRUGS (5)
  1. VFEND [Suspect]
     Indication: FEBRILE NEUTROPENIA
     Dosage: 200 MG, INTRAVENOUS
     Route: 042
     Dates: start: 20050822, end: 20050826
  2. SULPERAZON (SULBACTAM, CEFOPERAZONE) [Suspect]
     Indication: FEBRILE NEUTROPENIA
     Dosage: 4 GRAM, INTRAVENOUS
     Route: 042
     Dates: start: 20050822, end: 20050826
  3. TOBRAMYCIN SULFATE [Suspect]
     Indication: FEBRILE NEUTROPENIA
     Dosage: 120 MG, INTRAVENOUS
     Route: 042
     Dates: start: 20050822, end: 20050826
  4. LOXOPROFEN (LOXOPROFEN) [Suspect]
     Indication: ILL-DEFINED DISORDER
     Dosage: 1 TABLET, ORAL
     Route: 048
     Dates: start: 20050825
  5. DICLOFENAC SODIUM [Suspect]
     Indication: ILL-DEFINED DISORDER
     Dosage: 12.5 MG, PARENTERAL
     Route: 051
     Dates: start: 20050825

REACTIONS (4)
  - BRAIN STEM SYNDROME [None]
  - CONVULSION [None]
  - DEPRESSED LEVEL OF CONSCIOUSNESS [None]
  - PYREXIA [None]
